FAERS Safety Report 9439752 (Version 1)
Quarter: 2013Q3

REPORT INFORMATION
  Report Type: Spontaneous
  Country: US (occurrence: None)
  Receive Date: 20130802
  Receipt Date: 20130802
  Transmission Date: 20140515
  Serious: Yes (Other)
  Sender: FDA-Public Use
  Company Number: None

PATIENT
  Age: 83 Year
  Sex: Female
  Weight: 68.04 kg

DRUGS (11)
  1. ACETAMINOPHEN\TRAMADOL HYDROCHLORIDE [Suspect]
     Indication: NERVE COMPRESSION
     Route: 048
     Dates: start: 20130706, end: 20130707
  2. PROPAFENONE [Concomitant]
  3. PRAVASTATIN [Concomitant]
  4. FUROSEMIDE [Concomitant]
  5. METOPROLOL [Concomitant]
  6. ZOLPIDEM [Concomitant]
  7. LOW DOSE ASPIRIN [Concomitant]
  8. VITAMIN D [Concomitant]
  9. CALCIUM [Concomitant]
  10. RED RICE YEAST [Concomitant]
  11. BIOTIN [Concomitant]

REACTIONS (3)
  - Dizziness [None]
  - Syncope [None]
  - Somnambulism [None]
